FAERS Safety Report 7827537-7 (Version None)
Quarter: 2011Q4

REPORT INFORMATION
  Report Type: 
  Country: None (occurrence: None)
  Receive Date: 20111020
  Receipt Date: 20111005
  Transmission Date: 20120403
  Serious: Yes (Death, Hospitalization)
  Sender: FDA-Public Use
  Company Number: BR-ROCHE-687356

PATIENT
  Sex: Female
  Weight: 37 kg

DRUGS (5)
  1. INTERFERON ALFA [Suspect]
     Indication: RENAL CELL CARCINOMA
     Dosage: DOSE: 6 UM THRICE WEEKLY
     Route: 058
     Dates: start: 20091127, end: 20100215
  2. OMEPRAZOLE [Concomitant]
     Indication: PROPHYLAXIS
     Dates: start: 20090801, end: 20100217
  3. AVASTIN [Suspect]
     Indication: RENAL CELL CARCINOMA
     Route: 042
     Dates: start: 20091127, end: 20100215
  4. LACTULON [Concomitant]
     Indication: CONSTIPATION PROPHYLAXIS
     Dates: start: 20091214, end: 20100217
  5. MORPHINE [Concomitant]
     Indication: CANCER PAIN
     Dates: start: 20091128, end: 20100217

REACTIONS (10)
  - CONFUSIONAL STATE [None]
  - LOSS OF CONSCIOUSNESS [None]
  - SEPSIS [None]
  - PNEUMOTHORAX [None]
  - DEHYDRATION [None]
  - SEPTIC SHOCK [None]
  - CANDIDA SEPSIS [None]
  - RENAL FAILURE [None]
  - GASTRIC FISTULA [None]
  - HAEMODYNAMIC INSTABILITY [None]
